FAERS Safety Report 23780410 (Version 6)
Quarter: 2025Q4

REPORT INFORMATION
  Report Type: Report from Study
  Country: US (occurrence: US)
  Receive Date: 20240424
  Receipt Date: 20251014
  Transmission Date: 20260118
  Serious: Yes (Hospitalization)
  Sender: TAKEDA
  Company Number: US-TAKEDA-2024TUS029255

PATIENT
  Age: 74 Year
  Sex: Male
  Weight: 89 kg

DRUGS (22)
  1. TEDUGLUTIDE [Suspect]
     Active Substance: TEDUGLUTIDE
     Indication: Short-bowel syndrome
     Dosage: UNK
  2. TEDUGLUTIDE [Suspect]
     Active Substance: TEDUGLUTIDE
     Indication: Gastrointestinal stoma complication
     Dosage: UNK
  3. TEDUGLUTIDE [Suspect]
     Active Substance: TEDUGLUTIDE
     Dosage: 2.5 MILLIGRAM, QD
     Dates: start: 20240329
  4. TEDUGLUTIDE [Suspect]
     Active Substance: TEDUGLUTIDE
     Dosage: UNK
  5. TEDUGLUTIDE [Suspect]
     Active Substance: TEDUGLUTIDE
     Dosage: 2.3 MILLIGRAM, QD
  6. TEDUGLUTIDE [Suspect]
     Active Substance: TEDUGLUTIDE
     Dosage: UNK UNK, QD
  7. ACETAMINOPHEN [Concomitant]
     Active Substance: ACETAMINOPHEN
     Dosage: 2 DOSAGE FORM, QID
  8. ALLOPURINOL [Concomitant]
     Active Substance: ALLOPURINOL
     Dosage: 300 MILLIGRAM, QD
  9. CHOLECALCIFEROL [Concomitant]
     Active Substance: CHOLECALCIFEROL
     Dosage: 1 DOSAGE FORM, 2/WEEK
  10. CHOLESTYRAMINE [Concomitant]
     Active Substance: CHOLESTYRAMINE
     Dosage: 1 DOSAGE FORM, BID
  11. ATROPINE\DIPHENOXYLATE [Concomitant]
     Active Substance: ATROPINE\DIPHENOXYLATE
     Dosage: 2 DOSAGE FORM, TID
  12. HYDROXYZINE HYDROCHLORIDE [Concomitant]
     Active Substance: HYDROXYZINE HYDROCHLORIDE
     Dosage: 1 DOSAGE FORM, QD
  13. KLOR-CON M20 [Concomitant]
     Active Substance: POTASSIUM CHLORIDE
     Dosage: 1 DOSAGE FORM, QD
  14. LEVOTHYROXINE [Concomitant]
     Active Substance: LEVOTHYROXINE
     Dosage: UNK UNK, QD
  15. LISINOPRIL [Concomitant]
     Active Substance: LISINOPRIL
     Dosage: 1 DOSAGE FORM, QD
  16. MELATONIN [Concomitant]
     Active Substance: MELATONIN
     Dosage: 1 DOSAGE FORM, QD
  17. METAMUCIL [Concomitant]
     Active Substance: PLANTAGO SEED
     Dosage: 1 DOSAGE FORM, QD
  18. SERTRALINE [Concomitant]
     Active Substance: SERTRALINE HYDROCHLORIDE
     Dosage: 2 DOSAGE FORM, QD
  19. SODIUM BICARBONATE [Concomitant]
     Active Substance: SODIUM BICARBONATE
     Dosage: 2 DOSAGE FORM, TID
  20. MODERNA COVID-19 VACCINE [Concomitant]
     Active Substance: ELASOMERAN
     Dosage: UNK
  21. MODERNA COVID-19 VACCINE [Concomitant]
     Active Substance: ELASOMERAN
     Dosage: UNK
  22. FAMOTIDINE [Concomitant]
     Active Substance: FAMOTIDINE
     Dosage: 1 DOSAGE FORM, BID

REACTIONS (18)
  - Device issue [Unknown]
  - Gastrointestinal stoma output decreased [Unknown]
  - Confusional state [Unknown]
  - Fatigue [Unknown]
  - Malaise [Unknown]
  - Decreased appetite [Unknown]
  - Nausea [Recovered/Resolved]
  - Asthenia [Unknown]
  - Urinary tract inflammation [Unknown]
  - White blood cells urine positive [Unknown]
  - Cystitis [Unknown]
  - Blood pressure abnormal [Unknown]
  - Vomiting [Unknown]
  - Product dose omission issue [Unknown]
  - Product distribution issue [Unknown]
  - Needle issue [Unknown]
  - Blood potassium increased [Unknown]
  - Circumstance or information capable of leading to medication error [Unknown]

NARRATIVE: CASE EVENT DATE: 20240309
